FAERS Safety Report 22132351 (Version 3)
Quarter: 2023Q4

REPORT INFORMATION
  Report Type: Other
  Country: US (occurrence: US)
  Receive Date: 20230323
  Receipt Date: 20231107
  Transmission Date: 20240110
  Serious: Yes (Hospitalization)
  Sender: FDA-Public Use
  Company Number: US-TRAVERE-2022TVT00407

PATIENT
  Age: 4 Year
  Sex: Female

DRUGS (13)
  1. CHOLBAM [Suspect]
     Active Substance: CHOLIC ACID
     Indication: Bile acid synthesis disorder
     Dosage: 50MG 2 CAPSULES IN THE MORNING AND 1 CAPSULE IN THE EVENING..
     Route: 048
     Dates: start: 20220226
  2. LEVETIRACETAM [Concomitant]
     Active Substance: LEVETIRACETAM
  3. KEPPRA [Concomitant]
     Active Substance: LEVETIRACETAM
  4. FLONASE ALLERGY RELIEF [Concomitant]
     Active Substance: FLUTICASONE PROPIONATE
  5. Levocarnitine (Dietary) [Concomitant]
  6. ZINC [Concomitant]
     Active Substance: PYRITHIONE ZINC\ZINC\ZINC CHLORIDE
  7. PROBIOTIC BLEND [Concomitant]
  8. Flinstones Gummies Omega-3 DHA [Concomitant]
  9. BUDESONIDE [Concomitant]
     Active Substance: BUDESONIDE
  10. ALBUTEROL SULFATE [Concomitant]
     Active Substance: ALBUTEROL SULFATE
  11. FAMOTIDINE [Concomitant]
     Active Substance: FAMOTIDINE
  12. Polyethylene Glycol 1450 [Concomitant]
  13. Diastat Pediatric [Concomitant]

REACTIONS (2)
  - Viral infection [Recovering/Resolving]
  - Interstitial lung disease [Unknown]
